FAERS Safety Report 24448474 (Version 1)
Quarter: 2024Q4

REPORT INFORMATION
  Report Type: Report from Study
  Country: US (occurrence: US)
  Receive Date: 20241017
  Receipt Date: 20241017
  Transmission Date: 20250115
  Serious: Yes (Hospitalization)
  Sender: AMNEAL
  Company Number: US-AMNEAL PHARMACEUTICALS-2024-AMRX-02639

PATIENT
  Sex: Male

DRUGS (4)
  1. CARBIDOPA\LEVODOPA [Suspect]
     Active Substance: CARBIDOPA\LEVODOPA
     Indication: Product used for unknown indication
     Dosage: 48.75-195MG 1 CAP PO BID AND 61.25-245MG - 1 CAP PO DAILY
     Route: 048
  2. CARBIDOPA\LEVODOPA [Suspect]
     Active Substance: CARBIDOPA\LEVODOPA
     Dosage: 48.75-195MG  TAKE 1 CAPSULE TWO TIMES DAILY AND 61.25-245MG TAKE 1 CAPSULE BY MOUTH ONCE DAILY
     Route: 048
  3. CARBIDOPA\LEVODOPA [Suspect]
     Active Substance: CARBIDOPA\LEVODOPA
     Dosage: 48.75-195MG - TAKE 1 CAPSULE BY MOUTH ONCE DAILY IN THE MORNING. 61.25-245MG - TAKE 1 CAPSULE BY MOU
     Route: 048
  4. CARBIDOPA\LEVODOPA [Suspect]
     Active Substance: CARBIDOPA\LEVODOPA
     Dosage: 61.25-245MG, 1 CAPSULES, 2 /DAY, (1CAPSULE BY MOUTH IN THE AFTERNOON AND AT NIGHT ON EMPTY STOMACH)
     Route: 048

REACTIONS (5)
  - Hospitalisation [Unknown]
  - Dysphagia [Unknown]
  - Somnolence [Unknown]
  - Treatment noncompliance [Unknown]
  - Product use issue [Unknown]
